FAERS Safety Report 15107246 (Version 1)
Quarter: 2018Q3

REPORT INFORMATION
  Report Type: Spontaneous
  Country: DK (occurrence: DK)
  Receive Date: 20180704
  Receipt Date: 20180704
  Transmission Date: 20181010
  Serious: Yes (Death, Other)
  Sender: FDA-Public Use
  Company Number: DK-VIIV HEALTHCARE LIMITED-DK2018116024

PATIENT
  Age: 18 Year
  Sex: Male

DRUGS (6)
  1. QUETIAPINE ACCORD [Concomitant]
     Active Substance: QUETIAPINE
     Indication: DEPRESSION
     Dosage: STYRKE: 25 MG. DOSIS: 25 MG H?JST 2 GANGE DAGLIG
     Route: 048
  2. PHENERGAN [Concomitant]
     Active Substance: PROMETHAZINE HYDROCHLORIDE
     Indication: INSOMNIA
     Dosage: STYRKE: 25 MG. DOSIS: UKENDT
     Route: 048
  3. TIVICAY [Suspect]
     Active Substance: DOLUTEGRAVIR SODIUM
     Indication: HIV INFECTION
     Dosage: STYRKE: 50 MG
     Route: 048
     Dates: start: 20170829
  4. ROMIDEPSIN. [Concomitant]
     Active Substance: ROMIDEPSIN
     Indication: HIV INFECTION
     Dosage: DOSIS: 9,75 MG DEN 07SEP2017, 15SEP2017 OG DEN 21SEP2017
     Route: 042
     Dates: start: 20170907, end: 20170921
  5. TRUVADA [Concomitant]
     Active Substance: EMTRICITABINE\TENOFOVIR DISOPROXIL FUMARATE
     Indication: HIV INFECTION
     Dosage: STYRKE: 245 + 200 MG
     Route: 048
     Dates: start: 20170829
  6. OXABENZ [Concomitant]
     Active Substance: OXAZEPAM
     Indication: ANXIETY
     Dosage: STYRKE: 15 MG. DOSIS: 0,5 ? 1 TABLET DAGLIG
     Route: 048

REACTIONS (8)
  - Suicidal ideation [Fatal]
  - Depression [Not Recovered/Not Resolved]
  - Decreased appetite [Not Recovered/Not Resolved]
  - Initial insomnia [Not Recovered/Not Resolved]
  - Completed suicide [Fatal]
  - Asthenia [Not Recovered/Not Resolved]
  - Poor quality sleep [Not Recovered/Not Resolved]
  - Feeling of despair [Not Recovered/Not Resolved]

NARRATIVE: CASE EVENT DATE: 201711
